FAERS Safety Report 8755849 (Version 4)
Quarter: 2013Q1

REPORT INFORMATION
  Report Type: Spontaneous
  Country: GB (occurrence: GB)
  Receive Date: 20120827
  Receipt Date: 20130204
  Transmission Date: 20140127
  Serious: Yes (Other)
  Sender: FDA-Public Use
  Company Number: GB-BRISTOL-MYERS SQUIBB COMPANY-16861130

PATIENT
  Age: 15 Year
  Sex: Female

DRUGS (4)
  1. ABILIFY [Suspect]
     Indication: BIPOLAR DISORDER
  2. LAMOTRIGINE [Interacting]
     Indication: BIPOLAR DISORDER
  3. CETIRIZINE [Interacting]
     Indication: SEASONAL ALLERGY
     Dosage: OCCASIONAL CETIRIZINE
     Route: 048
  4. ETONOGESTREL [Interacting]
     Indication: CONTRACEPTION

REACTIONS (4)
  - Abortion spontaneous [Unknown]
  - Unintended pregnancy [Recovered/Resolved]
  - Drug interaction [Unknown]
  - Metrorrhagia [Unknown]
